FAERS Safety Report 21126465 (Version 2)
Quarter: 2022Q3

REPORT INFORMATION
  Report Type: Report from Study
  Country: GB (occurrence: GB)
  Receive Date: 20220725
  Receipt Date: 20220726
  Transmission Date: 20221027
  Serious: Yes (Death, Other)
  Sender: FDA-Public Use
  Company Number: GB-NOVARTISPH-NVSC2022GB162647

PATIENT
  Sex: Female
  Weight: 105 kg

DRUGS (1)
  1. COSENTYX [Suspect]
     Active Substance: SECUKINUMAB
     Indication: Psoriasis
     Dosage: 300 MG
     Route: 065
     Dates: start: 20150506

REACTIONS (3)
  - Hepatocellular carcinoma [Fatal]
  - Hepatic lesion [Fatal]
  - Autoimmune hepatitis [Unknown]

NARRATIVE: CASE EVENT DATE: 20161212
